FAERS Safety Report 4364541-8 (Version None)
Quarter: 2004Q2

REPORT INFORMATION
  Report Type: 
  Country: None (occurrence: None)
  Receive Date: 20040519
  Receipt Date: 20040504
  Transmission Date: 20050107
  Serious: Yes (Hospitalization)
  Sender: FDA-Public Use
  Company Number: 2004-FF-00294FF

PATIENT
  Sex: Male

DRUGS (1)
  1. MEXITIL [Suspect]
     Dosage: 400 MG (MG)

REACTIONS (5)
  - CONFUSIONAL STATE [None]
  - DIPLOPIA [None]
  - NYSTAGMUS [None]
  - OVERDOSE [None]
  - VOMITING [None]
